FAERS Safety Report 4396677-X (Version None)
Quarter: 2004Q3

REPORT INFORMATION
  Report Type: 
  Country: None (occurrence: None)
  Receive Date: 20040709
  Receipt Date: 20040629
  Transmission Date: 20050211
  Serious: Yes (Other)
  Sender: FDA-Public Use
  Company Number: 2004EU001311

PATIENT
  Sex: Male

DRUGS (5)
  1. FK506(TACROLIMUS) FORMULATION UNKNOWN [Suspect]
     Indication: LIVER TRANSPLANT
  2. PREDNISOLONE [Concomitant]
  3. 3TC (LAMIVUDINE) [Concomitant]
  4. D4T (STAVUDINE) [Concomitant]
  5. NELFINAVIR (NELFINAVIR) [Concomitant]

REACTIONS (2)
  - APPENDICITIS [None]
  - DIABETES MELLITUS [None]
